FAERS Safety Report 9816990 (Version 1)
Quarter: 2014Q1

REPORT INFORMATION
  Report Type: Spontaneous
  Country: JP (occurrence: JP)
  Receive Date: 20140114
  Receipt Date: 20140114
  Transmission Date: 20141002
  Serious: Yes (Other)
  Sender: FDA-Public Use
  Company Number: JP-GLAXOSMITHKLINE-B0959487A

PATIENT
  Age: 26 Year
  Sex: Male

DRUGS (4)
  1. ARIXTRA [Suspect]
     Route: 058
  2. WARFARIN [Suspect]
     Route: 048
  3. WARFARIN [Suspect]
     Route: 048
  4. WARFARIN [Suspect]
     Route: 048

REACTIONS (2)
  - Upper gastrointestinal haemorrhage [Unknown]
  - Haematemesis [Unknown]
